FAERS Safety Report 20004710 (Version 1)
Quarter: 2021Q4

REPORT INFORMATION
  Report Type: Spontaneous
  Country: CH (occurrence: CH)
  Receive Date: 20211027
  Receipt Date: 20211027
  Transmission Date: 20220303
  Serious: Yes (Other)
  Sender: FDA-Public Use
  Company Number: CH-PFIZER INC-202101439023

PATIENT
  Sex: Male

DRUGS (9)
  1. TAFAMIDIS MEGLUMINE [Suspect]
     Active Substance: TAFAMIDIS MEGLUMINE
     Dosage: UNK
     Dates: start: 201808, end: 201902
  2. TAFAMIDIS MEGLUMINE [Suspect]
     Active Substance: TAFAMIDIS MEGLUMINE
     Dosage: 61 MG
     Dates: start: 202007
  3. PATISIRAN SODIUM [Suspect]
     Active Substance: PATISIRAN SODIUM
     Indication: Adenomatous polyposis coli
     Dosage: UNK
     Dates: start: 201902
  4. GREEN TEA EXTRACT [Concomitant]
     Dosage: 400 MG
  5. GREEN TEA EXTRACT [Concomitant]
     Dosage: 600 MG, X2
  6. BISOPROLOL FUMARATE [Concomitant]
     Active Substance: BISOPROLOL FUMARATE
     Dosage: 1.25 MG
  7. TORASEMIDUM [Concomitant]
     Dosage: 30 MG
  8. SILDENAFIL CITRATE [Concomitant]
     Active Substance: SILDENAFIL CITRATE
     Dosage: 50 MG, AS NEEDED
  9. EDOXABAN TOSYLATE [Concomitant]
     Active Substance: EDOXABAN TOSYLATE
     Dosage: 60 MG

REACTIONS (2)
  - Cardiac failure chronic [Unknown]
  - Congestive hepatopathy [Unknown]
